FAERS Safety Report 9849623 (Version 1)
Quarter: 2014Q1

REPORT INFORMATION
  Report Type: Spontaneous
  Country: US (occurrence: US)
  Receive Date: 20140128
  Receipt Date: 20140128
  Transmission Date: 20141002
  Serious: No
  Sender: FDA-Public Use
  Company Number: US-PFIZER INC-2014024564

PATIENT
  Age: 61 Year
  Sex: Female
  Weight: 68.93 kg

DRUGS (3)
  1. CISPLATIN [Suspect]
     Indication: FALLOPIAN TUBE CANCER
     Dosage: UNK
     Dates: start: 201205, end: 201208
  2. CARBOPLATIN [Suspect]
     Indication: FALLOPIAN TUBE CANCER
     Dosage: UNK
     Dates: start: 201205, end: 201208
  3. TAXOL [Suspect]
     Indication: FALLOPIAN TUBE CANCER
     Dosage: UNK
     Dates: start: 201205, end: 201208

REACTIONS (1)
  - Neuropathy peripheral [Not Recovered/Not Resolved]
